FAERS Safety Report 7380112-3 (Version None)
Quarter: 2011Q1

REPORT INFORMATION
  Report Type: 
  Country: None (occurrence: None)
  Receive Date: 20110329
  Receipt Date: 20100422
  Transmission Date: 20110831
  Serious: No
  Sender: FDA-Public Use
  Company Number: US-MYLANLABS-2010S1007044

PATIENT
  Age: 64 Year
  Sex: Female

DRUGS (2)
  1. ESTRADIOL [Suspect]
     Indication: HORMONE REPLACEMENT THERAPY
     Dosage: QW
     Dates: start: 20091001, end: 20100301
  2. ESTRADIOL [Suspect]
     Dosage: QW
     Dates: start: 20100401, end: 20100401

REACTIONS (4)
  - DRUG EFFECT DECREASED [None]
  - APPLICATION SITE IRRITATION [None]
  - APPLICATION SITE ERYTHEMA [None]
  - HOT FLUSH [None]
